FAERS Safety Report 6580009-2 (Version None)
Quarter: 2010Q1

REPORT INFORMATION
  Report Type: 
  Country: None (occurrence: None)
  Receive Date: 20100212
  Receipt Date: 20100201
  Transmission Date: 20100710
  Serious: Yes (Hospitalization)
  Sender: FDA-Public Use
  Company Number: US-WATSON-2010-01269

PATIENT
  Age: 50 Year
  Sex: Female

DRUGS (1)
  1. HYDRALAZINE (WATSON LABORATORIES) [Suspect]
     Indication: HYPERTENSION
     Dosage: 75 MG, TID
     Route: 048

REACTIONS (4)
  - ANTINEUTROPHIL CYTOPLASMIC ANTIBODY POSITIVE [None]
  - GLOMERULONEPHRITIS [None]
  - PULMONARY HAEMORRHAGE [None]
  - RENAL VASCULITIS [None]
